FAERS Safety Report 9868275 (Version 1)
Quarter: 2014Q1

REPORT INFORMATION
  Report Type: Spontaneous
  Country: US (occurrence: US)
  Receive Date: 20140204
  Receipt Date: 20140204
  Transmission Date: 20141002
  Serious: No
  Sender: FDA-Public Use
  Company Number: US-TEVA-459935USA

PATIENT
  Sex: Female

DRUGS (1)
  1. QVAR [Suspect]

REACTIONS (1)
  - Menstrual disorder [Unknown]
